FAERS Safety Report 16976373 (Version 1)
Quarter: 2019Q4

REPORT INFORMATION
  Report Type: Spontaneous
  Country: US (occurrence: US)
  Receive Date: 20191030
  Receipt Date: 20191030
  Transmission Date: 20200122
  Serious: No
  Sender: FDA-Public Use
  Company Number: US-TEVA-2019-US-1129630

PATIENT
  Sex: Female

DRUGS (1)
  1. SALBUTAMOL [Suspect]
     Active Substance: ALBUTEROL
     Indication: BRONCHITIS CHRONIC
     Route: 065

REACTIONS (2)
  - Wheezing [Unknown]
  - Asthma [Unknown]
